FAERS Safety Report 8266050-2 (Version None)
Quarter: 2012Q2

REPORT INFORMATION
  Report Type: 
  Country: None (occurrence: None)
  Receive Date: 20120406
  Receipt Date: 20120328
  Transmission Date: 20120825
  Serious: Yes (Hospitalization)
  Sender: FDA-Public Use
  Company Number: FR-ASTRAZENECA-2012SE21221

PATIENT
  Age: 56 Year
  Sex: Female

DRUGS (4)
  1. ESCITALOPRAM OXALATE [Concomitant]
     Route: 048
  2. LORAZEPAM [Concomitant]
     Route: 048
  3. QUETIAPINE FUMARATE [Suspect]
     Route: 048
     Dates: start: 20120125, end: 20120229
  4. NITROFURANTOINE [Concomitant]
     Route: 048
     Dates: start: 20120127, end: 20120202

REACTIONS (1)
  - CHOLESTASIS [None]
